FAERS Safety Report 10675650 (Version 1)
Quarter: 2014Q4

REPORT INFORMATION
  Report Type: Spontaneous
  Country: DE (occurrence: DE)
  Receive Date: 20141224
  Receipt Date: 20141224
  Transmission Date: 20150529
  Serious: Yes (Congenital Anomaly, Other)
  Sender: FDA-Public Use
  Company Number: DE-WATSON-2014-27437

PATIENT
  Age: 1 Day
  Sex: Male
  Weight: 3 kg

DRUGS (5)
  1. VALSARTAN (UNKNOWN) [Suspect]
     Active Substance: VALSARTAN
     Indication: HYPERTENSION
     Dosage: 80 MG, DAILY
     Route: 064
     Dates: start: 20140115, end: 20140910
  2. ASPIRIN. [Concomitant]
     Active Substance: ASPIRIN
     Indication: CARDIOVASCULAR DISORDER
     Dosage: 100 MG, DAILY
     Route: 064
     Dates: start: 20140810, end: 20140905
  3. SOTALOL (UNKNOWN) [Suspect]
     Active Substance: SOTALOL
     Indication: ARRHYTHMIA
     Dosage: 120 MG, DAILY
     Route: 064
     Dates: start: 20140115, end: 20140910
  4. FOLSAEURE [Concomitant]
     Active Substance: FOLIC ACID
     Indication: PROPHYLAXIS OF NEURAL TUBE DEFECT
     Dosage: UNK, UNKNOWN
     Route: 064
  5. METHYLDOPA. [Concomitant]
     Active Substance: METHYLDOPA
     Indication: HYPERTENSION
     Dosage: UNK, UNKNOWN
     Route: 064

REACTIONS (12)
  - Joint contracture [Unknown]
  - High arched palate [Not Recovered/Not Resolved]
  - Atrial septal defect [Unknown]
  - Foot deformity [Unknown]
  - Cryptorchism [Unknown]
  - Hypertension [Unknown]
  - Pulmonary hypertension [Recovered/Resolved]
  - Renal failure [Unknown]
  - Patent ductus arteriosus [Unknown]
  - Hypocalvaria [Unknown]
  - Foetal exposure during pregnancy [Unknown]
  - Premature baby [Recovering/Resolving]

NARRATIVE: CASE EVENT DATE: 20140919
